FAERS Safety Report 11003469 (Version 1)
Quarter: 2015Q2

REPORT INFORMATION
  Report Type: Spontaneous
  Country: US (occurrence: None)
  Receive Date: 20150408
  Receipt Date: 20150408
  Transmission Date: 20150821
  Serious: Yes (Hospitalization)
  Sender: FDA-Public Use
  Company Number: None

PATIENT
  Age: 65 Year
  Sex: Male
  Weight: 120.6 kg

DRUGS (7)
  1. CYTARABINE. [Suspect]
     Active Substance: CYTARABINE
     Dates: end: 20150303
  2. IDARUBICIN [Suspect]
     Active Substance: IDARUBICIN
     Dates: end: 20150302
  3. PRAVASTATIN SODIUM. [Suspect]
     Active Substance: PRAVASTATIN SODIUM
     Dates: end: 20150304
  4. VANCOMYCIN [Concomitant]
     Active Substance: VANCOMYCIN
  5. ACYCLOVIR. [Concomitant]
     Active Substance: ACYCLOVIR
  6. ZOSYN [Concomitant]
     Active Substance: PIPERACILLIN SODIUM\TAZOBACTAM SODIUM
  7. ITRACONAZOLE. [Concomitant]
     Active Substance: ITRACONAZOLE

REACTIONS (9)
  - White blood cell count decreased [None]
  - Mental status changes [None]
  - Hypotension [None]
  - Acute pulmonary oedema [None]
  - Haemoglobin decreased [None]
  - Platelet count decreased [None]
  - Septic shock [None]
  - Cardiogenic shock [None]
  - Pyrexia [None]

NARRATIVE: CASE EVENT DATE: 20150318
